FAERS Safety Report 11584751 (Version 1)
Quarter: 2015Q4

REPORT INFORMATION
  Report Type: Spontaneous
  Country: US (occurrence: US)
  Receive Date: 20151001
  Receipt Date: 20151001
  Transmission Date: 20160304
  Serious: No
  Sender: FDA-Public Use
  Company Number: US-JNJFOC-20141017885

PATIENT
  Sex: Male
  Weight: 68.04 kg

DRUGS (2)
  1. NIZORAL [Suspect]
     Active Substance: KETOCONAZOLE
     Indication: PRURITUS
     Route: 061
     Dates: start: 2013
  2. KETOCONAZOLE 2% [Suspect]
     Active Substance: KETOCONAZOLE
     Indication: PRURITUS
     Route: 061
     Dates: start: 2014

REACTIONS (2)
  - Drug administration error [Not Recovered/Not Resolved]
  - Drug ineffective [Unknown]

NARRATIVE: CASE EVENT DATE: 2013
